FAERS Safety Report 6771374-1 (Version None)
Quarter: 2010Q2

REPORT INFORMATION
  Report Type: 
  Country: None (occurrence: None)
  Receive Date: 20100520
  Receipt Date: 20090908
  Transmission Date: 20101027
  Serious: Yes (Other)
  Sender: FDA-Public Use
  Company Number: 2009181626

PATIENT
  Age: 71 Year
  Sex: Female
  Weight: 66 kg

DRUGS (9)
  1. PROVERA [Suspect]
     Indication: HORMONE REPLACEMENT THERAPY
     Dosage: 10 MG, ORAL ; 2.5 MG, ORAL
     Route: 048
     Dates: start: 19850101, end: 19890601
  2. PROVERA [Suspect]
     Indication: HORMONE REPLACEMENT THERAPY
     Dosage: 10 MG, ORAL ; 2.5 MG, ORAL
     Route: 048
     Dates: start: 19921201, end: 20000301
  3. PREMPRO [Suspect]
     Indication: HORMONE REPLACEMENT THERAPY
     Dosage: 0.625/ 2.5MG
     Dates: start: 20001101, end: 20030201
  4. PREMARIN [Suspect]
     Indication: HORMONE REPLACEMENT THERAPY
     Dosage: 0.625 MG
     Dates: start: 19950101, end: 20000301
  5. ASPIRIN [Concomitant]
  6. LOTREL [Concomitant]
  7. LEVOXYL [Concomitant]
  8. LIPITOR [Concomitant]
  9. CALCIUM (CALCIUM) [Concomitant]

REACTIONS (1)
  - BREAST CANCER FEMALE [None]
